FAERS Safety Report 23222370 (Version 2)
Quarter: 2024Q2

REPORT INFORMATION
  Report Type: Report from Study
  Country: CA (occurrence: CA)
  Receive Date: 20231123
  Receipt Date: 20240515
  Transmission Date: 20240715
  Serious: Yes (Other)
  Sender: FDA-Public Use
  Company Number: CA-002147023-NVSC2021CA272596

PATIENT
  Sex: Female

DRUGS (5)
  1. HYRIMOZ [Suspect]
     Active Substance: ADALIMUMAB-ADAZ
     Indication: Crohn^s disease
     Dosage: 40 MG
     Route: 058
     Dates: start: 20210819
  2. CYCLOSPORINE [Concomitant]
     Active Substance: CYCLOSPORINE
     Dosage: 125 MG, BID
     Route: 065
     Dates: start: 202403
  3. CYCLOSPORINE [Concomitant]
     Active Substance: CYCLOSPORINE
     Indication: Product used for unknown indication
     Dosage: UNK (DOUBLE THE DOSE)
     Route: 065
  4. METHOTREXATE [Concomitant]
     Active Substance: METHOTREXATE
     Indication: Product used for unknown indication
     Dosage: 7.5 MG, QW
     Route: 065
  5. METHOTREXATE [Concomitant]
     Active Substance: METHOTREXATE
     Dosage: UNK
     Route: 065

REACTIONS (14)
  - Pyoderma gangrenosum [Unknown]
  - Hydrosalpinx [Unknown]
  - Fistula [Unknown]
  - Arthralgia [Unknown]
  - Pouchitis [Unknown]
  - Bone pain [Unknown]
  - Secretion discharge [Unknown]
  - Illness [Unknown]
  - Ulcer [Unknown]
  - Stoma complication [Unknown]
  - Anal fissure [Recovering/Resolving]
  - Malaise [Unknown]
  - Abdominal pain [Unknown]
  - Product dose omission issue [Unknown]
